FAERS Safety Report 11381775 (Version 1)
Quarter: 2015Q3

REPORT INFORMATION
  Report Type: Spontaneous
  Country: US (occurrence: US)
  Receive Date: 20150814
  Receipt Date: 20150814
  Transmission Date: 20151125
  Serious: Yes (Other)
  Sender: FDA-Public Use
  Company Number: US-ASTRAZENECA-2015SE76967

PATIENT
  Age: 814 Month
  Sex: Female
  Weight: 70.3 kg

DRUGS (24)
  1. VOLTAREN [Concomitant]
     Active Substance: DICLOFENAC SODIUM
     Indication: ARTHRALGIA
     Dosage: DAILY
     Route: 048
  2. OMEGA 3 [Concomitant]
     Active Substance: OMEGA-3 FATTY ACIDS
     Indication: VITAMIN SUPPLEMENTATION
  3. BUDESONIDE. [Suspect]
     Active Substance: BUDESONIDE
     Indication: IRRITABLE BOWEL SYNDROME
     Route: 048
     Dates: start: 2014
  4. VICODIN [Concomitant]
     Active Substance: ACETAMINOPHEN\HYDROCODONE BITARTRATE
     Indication: SLEEP DISORDER
     Dosage: 5 DASH 325
  5. BUDESONIDE. [Suspect]
     Active Substance: BUDESONIDE
     Indication: COLITIS
     Route: 048
     Dates: end: 2015
  6. VOLTAREN [Concomitant]
     Active Substance: DICLOFENAC SODIUM
     Indication: ARTHRALGIA
     Route: 048
  7. VOLTAREN [Concomitant]
     Active Substance: DICLOFENAC SODIUM
     Indication: ARTHRALGIA
     Route: 048
  8. LIPITOR [Concomitant]
     Active Substance: ATORVASTATIN CALCIUM
     Indication: BLOOD CHOLESTEROL INCREASED
     Dosage: 10 MG, 2 PILLS A WEEK
     Route: 048
     Dates: start: 2014
  9. VOLTAREN [Concomitant]
     Active Substance: DICLOFENAC SODIUM
     Indication: ARTHRALGIA
     Route: 048
  10. VOLTAREN [Concomitant]
     Active Substance: DICLOFENAC SODIUM
     Indication: ARTHRALGIA
     Route: 048
  11. BUDESONIDE. [Suspect]
     Active Substance: BUDESONIDE
     Indication: IRRITABLE BOWEL SYNDROME
     Route: 048
     Dates: start: 2015
  12. TEMAZEPAM. [Concomitant]
     Active Substance: TEMAZEPAM
     Indication: SLEEP DISORDER
  13. CALCIUM [Concomitant]
     Active Substance: CALCIUM
     Indication: VITAMIN SUPPLEMENTATION
  14. BUDESONIDE. [Suspect]
     Active Substance: BUDESONIDE
     Indication: IRRITABLE BOWEL SYNDROME
     Route: 048
     Dates: start: 201206, end: 2012
  15. BUDESONIDE. [Suspect]
     Active Substance: BUDESONIDE
     Indication: COLITIS
     Route: 048
     Dates: start: 201206, end: 2012
  16. BUDESONIDE. [Suspect]
     Active Substance: BUDESONIDE
     Indication: IRRITABLE BOWEL SYNDROME
     Route: 048
     Dates: end: 2015
  17. VOLTAREN [Concomitant]
     Active Substance: DICLOFENAC SODIUM
     Indication: ARTHRALGIA
     Route: 061
     Dates: start: 2013
  18. VOLTAREN [Concomitant]
     Active Substance: DICLOFENAC SODIUM
     Indication: ARTHRALGIA
     Dosage: DAILY
     Route: 048
  19. VOLTAREN [Concomitant]
     Active Substance: DICLOFENAC SODIUM
     Indication: ARTHRALGIA
     Dosage: DAILY
     Route: 048
  20. GLUCOSAMINE [Concomitant]
     Active Substance: GLUCOSAMINE
     Indication: VITAMIN SUPPLEMENTATION
  21. COLLAGEN DIETARY SUPPLEMENT [Concomitant]
     Indication: VITAMIN SUPPLEMENTATION
  22. HYOSCYAMINE. [Concomitant]
     Active Substance: HYOSCYAMINE
     Indication: ABDOMINAL PAIN UPPER
  23. BUDESONIDE. [Suspect]
     Active Substance: BUDESONIDE
     Indication: COLITIS
     Route: 048
     Dates: start: 2014
  24. BUDESONIDE. [Suspect]
     Active Substance: BUDESONIDE
     Indication: COLITIS
     Route: 048
     Dates: start: 2015

REACTIONS (5)
  - Product use issue [Unknown]
  - Lower limb fracture [Unknown]
  - Intentional product misuse [Unknown]
  - Drug ineffective [Unknown]
  - Off label use [Unknown]

NARRATIVE: CASE EVENT DATE: 201206
